FAERS Safety Report 20791179 (Version 2)
Quarter: 2022Q2

REPORT INFORMATION
  Report Type: Spontaneous
  Country: ES (occurrence: ES)
  Receive Date: 20220505
  Receipt Date: 20220519
  Transmission Date: 20220720
  Serious: Yes (Hospitalization)
  Sender: FDA-Public Use
  Company Number: None

PATIENT
  Age: 74 Year
  Sex: Female

DRUGS (4)
  1. IRINOTECAN HYDROCHLORIDE [Suspect]
     Active Substance: IRINOTECAN HYDROCHLORIDE
     Indication: Colon neoplasm
     Dosage: 285 MG, FREQ:2 WEEK;
     Route: 042
     Dates: start: 2022, end: 20220324
  2. AFLIBERCEPT [Suspect]
     Active Substance: AFLIBERCEPT
     Indication: Colon neoplasm
     Dosage: 245 MG; FREQ:2 WEEK;
     Route: 042
     Dates: start: 2022, end: 20220324
  3. FLUOROURACIL [Suspect]
     Active Substance: FLUOROURACIL
     Indication: Colon neoplasm
     Dosage: 3840 MG, FREQ:2 WEEK;
     Route: 042
     Dates: start: 2022, end: 20220324
  4. FLUOROURACIL [Concomitant]
     Active Substance: FLUOROURACIL
     Indication: Colon neoplasm
     Dosage: 640 MG, FREQ:2 WEEK;
     Route: 042
     Dates: start: 2022, end: 20220324

REACTIONS (2)
  - Subclavian vein thrombosis [Recovered/Resolved]
  - Brachiocephalic vein thrombosis [Recovered/Resolved]

NARRATIVE: CASE EVENT DATE: 20220331
